FAERS Safety Report 18131630 (Version 2)
Quarter: 2020Q3

REPORT INFORMATION
  Report Type: Spontaneous
  Country: CH (occurrence: CH)
  Receive Date: 20200810
  Receipt Date: 20200904
  Transmission Date: 20201103
  Serious: Yes (Hospitalization)
  Sender: FDA-Public Use
  Company Number: CH-ROCHE-2653954

PATIENT
  Sex: Male

DRUGS (1)
  1. MABTHERA [Suspect]
     Active Substance: RITUXIMAB
     Indication: LIMBIC ENCEPHALITIS
     Route: 042
     Dates: end: 202005

REACTIONS (6)
  - Rash [Recovered/Resolved]
  - Joint swelling [Recovered/Resolved]
  - Upper respiratory tract infection [Recovered/Resolved]
  - Arthralgia [Recovered/Resolved]
  - Pyrexia [Recovered/Resolved]
  - Night sweats [Recovered/Resolved]

NARRATIVE: CASE EVENT DATE: 2019
